FAERS Safety Report 14623662 (Version 1)
Quarter: 2018Q1

REPORT INFORMATION
  Report Type: Spontaneous
  Country: US (occurrence: US)
  Receive Date: 20180309
  Receipt Date: 20180309
  Transmission Date: 20180509
  Serious: Yes (Other)
  Sender: FDA-Public Use
  Company Number: None

PATIENT
  Age: 51 Year
  Sex: Male
  Weight: 144 kg

DRUGS (1)
  1. PEMBROLIZUMAB 200MG [Suspect]
     Active Substance: PEMBROLIZUMAB
     Indication: ACUTE MYELOID LEUKAEMIA
     Dosage: 200MG ONCE DAILY EVERY 3 WEEKS IV
     Route: 042
     Dates: start: 20171107, end: 20180213

REACTIONS (2)
  - Graft versus host disease [None]
  - Dermatitis [None]

NARRATIVE: CASE EVENT DATE: 20180308
